FAERS Safety Report 20345989 (Version 14)
Quarter: 2022Q4

REPORT INFORMATION
  Report Type: Spontaneous
  Country: IN (occurrence: IN)
  Receive Date: 20220118
  Receipt Date: 20221229
  Transmission Date: 20230112
  Serious: Yes (Other)
  Sender: FDA-Public Use
  Company Number: IN-PFIZER INC-2021245193

PATIENT
  Age: 62 Year
  Sex: Female
  Weight: 78.2 kg

DRUGS (9)
  1. PALBOCICLIB [Suspect]
     Active Substance: PALBOCICLIB
     Indication: Breast cancer metastatic
     Dosage: 125 MG, CYCLIC (ONCE DAILY FOR 21 DAYS, 7 DAYS GAP)
     Route: 048
     Dates: start: 20200930
  2. PALBOCICLIB [Suspect]
     Active Substance: PALBOCICLIB
     Dosage: 125 MG, CYCLIC (ONCE DAILY FOR 21 DAYS, 7 DAYS GAP)
     Route: 048
     Dates: start: 20201001
  3. PALBOCICLIB [Suspect]
     Active Substance: PALBOCICLIB
     Indication: Breast cancer metastatic
     Dosage: 125 MG, ONCE DAILY FOR 21 DAYS, 7 DAYS GAP
     Route: 048
     Dates: start: 20220711
  4. PALBOCICLIB [Suspect]
     Active Substance: PALBOCICLIB
     Dosage: 125 MG, 1X/DAY(X 21 DAYS)
     Route: 048
     Dates: start: 20221121
  5. PALBOCICLIB [Suspect]
     Active Substance: PALBOCICLIB
     Dosage: 125 MG, 1X/DAY(X 21 DAYS)
     Route: 048
     Dates: start: 20221222
  6. LETROZOLE [Concomitant]
     Active Substance: LETROZOLE
     Dosage: 2.5 MG, 1X/DAY
     Dates: start: 202009
  7. ZOLEDRONIC ACID [Concomitant]
     Active Substance: ZOLEDRONIC ACID
     Dosage: UNK
     Dates: start: 202009
  8. ZOLEDRONIC ACID [Concomitant]
     Active Substance: ZOLEDRONIC ACID
     Dosage: 4 MG, 1X/DAY
     Dates: start: 20201224
  9. CALCIUM CARBONATE\CHOLECALCIFEROL [Concomitant]
     Active Substance: CALCIUM CARBONATE\CHOLECALCIFEROL
     Dosage: 500MG/500IU ONCE DAILY
     Dates: start: 20201224

REACTIONS (19)
  - Carcinoembryonic antigen increased [Recovering/Resolving]
  - Overweight [Recovering/Resolving]
  - Mouth ulceration [Unknown]
  - Nausea [Recovered/Resolved]
  - Blood calcium decreased [Unknown]
  - Illness [Unknown]
  - Haemoglobin abnormal [Unknown]
  - White blood cell disorder [Unknown]
  - Neutrophil count abnormal [Unknown]
  - Blood urea abnormal [Unknown]
  - Red blood cell count abnormal [Unknown]
  - Platelet count abnormal [Unknown]
  - Blood pressure increased [Recovering/Resolving]
  - Body mass index increased [Unknown]
  - White blood cell count decreased [Unknown]
  - Respiratory rate increased [Unknown]
  - Body surface area increased [Unknown]
  - Arthralgia [Unknown]
  - Product dose omission issue [Unknown]
